FAERS Safety Report 21498208 (Version 1)
Quarter: 2022Q4

REPORT INFORMATION
  Report Type: Report from Study
  Country: US (occurrence: US)
  Receive Date: 20221024
  Receipt Date: 20221024
  Transmission Date: 20230113
  Serious: No
  Sender: FDA-Public Use
  Company Number: US-ABBVIE-4173642

PATIENT
  Sex: Female

DRUGS (3)
  1. HUMIRA [Suspect]
     Active Substance: ADALIMUMAB
     Indication: Rheumatoid arthritis
     Route: 058
  2. Moderna Covid-19 vbaccine [Concomitant]
     Indication: COVID-19 immunisation
     Dosage: FREQUENCY: ONCE?FIRST DOSE
     Dates: start: 202103, end: 202103
  3. Moderna Covid-19 vbaccine [Concomitant]
     Indication: COVID-19 immunisation
     Dosage: FREQUENCY: ONCE?SECOND DOSE
     Dates: start: 202104, end: 202104

REACTIONS (1)
  - Arthritis [Recovering/Resolving]
